FAERS Safety Report 12180562 (Version 1)
Quarter: 2016Q1

REPORT INFORMATION
  Report Type: Not Available
  Country: FR (occurrence: FR)
  Receive Date: 20160315
  Receipt Date: 20160315
  Transmission Date: 20160526
  Serious: Yes (Hospitalization, Other)
  Sender: FDA-Public Use
  Company Number: FR-MUNDIPHARMA DS AND PHARMACOVIGILANCE-GBR-2016-0034592

PATIENT
  Age: 77 Year
  Sex: Female

DRUGS (10)
  1. CRESTOR [Concomitant]
     Active Substance: ROSUVASTATIN CALCIUM
  2. CALCIDOSE VITAMINE D [Concomitant]
     Active Substance: CALCIUM\CHOLECALCIFEROL
  3. ALLOPURINOL. [Concomitant]
     Active Substance: ALLOPURINOL
  4. ZOLPIDEM [Concomitant]
     Active Substance: ZOLPIDEM\ZOLPIDEM TARTRATE
  5. KAYEXALATE [Concomitant]
     Active Substance: SODIUM POLYSTYRENE SULFONATE
  6. KARDEGIC [Concomitant]
     Active Substance: ASPIRIN LYSINE
  7. LANTUS [Concomitant]
     Active Substance: INSULIN GLARGINE
  8. DOLIPRANE [Concomitant]
     Active Substance: ACETAMINOPHEN
  9. OXYCONTIN [Suspect]
     Active Substance: OXYCODONE HYDROCHLORIDE
     Indication: PAIN
     Dosage: 40 MG, BID
     Route: 048
     Dates: end: 201412
  10. MIANSERINE [Concomitant]
     Active Substance: MIANSERIN HYDROCHLORIDE

REACTIONS (5)
  - Acute kidney injury [Unknown]
  - Overdose [Unknown]
  - Dyspnoea [Recovered/Resolved]
  - Sepsis [Unknown]
  - Somnolence [Recovered/Resolved]

NARRATIVE: CASE EVENT DATE: 201412
